FAERS Safety Report 5079040-8 (Version None)
Quarter: 2006Q3

REPORT INFORMATION
  Report Type: 
  Country: None (occurrence: None)
  Receive Date: 20060720
  Receipt Date: 20060327
  Transmission Date: 20061208
  Serious: Yes (Hospitalization)
  Sender: FDA-Public Use
  Company Number: FPI-06-018

PATIENT
  Age: 37 Year
  Sex: Female
  Weight: 61.2356 kg

DRUGS (1)
  1. ACTHREL [Suspect]
     Indication: INSOMNIA
     Dosage: 100 MCG, QD, IV
     Route: 042
     Dates: start: 20060320

REACTIONS (6)
  - FACE OEDEMA [None]
  - FLUSHING [None]
  - PRURITUS [None]
  - TACHYCARDIA [None]
  - URTICARIA [None]
  - WHEEZING [None]
